FAERS Safety Report 25422100 (Version 1)
Quarter: 2025Q2

REPORT INFORMATION
  Report Type: Spontaneous
  Country: TH (occurrence: TH)
  Receive Date: 20250611
  Receipt Date: 20250611
  Transmission Date: 20250716
  Serious: Yes (Other)
  Sender: AMGEN
  Company Number: TH-AMGEN-THASP2025110126

PATIENT

DRUGS (5)
  1. FILGRASTIM [Suspect]
     Active Substance: FILGRASTIM
     Indication: Neutropenia
     Route: 065
  2. CYCLOPHOSPHAMIDE [Concomitant]
     Active Substance: CYCLOPHOSPHAMIDE
  3. MYCOPHENOLATE MOFETIL [Concomitant]
     Active Substance: MYCOPHENOLATE MOFETIL
  4. CYCLOSPORINE [Concomitant]
     Active Substance: CYCLOSPORINE
  5. CIPROFLOXACIN [Concomitant]
     Active Substance: CIPROFLOXACIN
     Dosage: 500 MILLIGRAM, BID

REACTIONS (5)
  - Bronchopulmonary aspergillosis [Unknown]
  - Cytomegalovirus colitis [Unknown]
  - Cytomegalovirus viraemia [Unknown]
  - Fungal infection [Unknown]
  - Sinusitis fungal [Unknown]
